FAERS Safety Report 9364529 (Version 1)
Quarter: 2013Q2

REPORT INFORMATION
  Report Type: Spontaneous
  Country: US (occurrence: US)
  Receive Date: 20130624
  Receipt Date: 20130624
  Transmission Date: 20140414
  Serious: Yes (Other)
  Sender: FDA-Public Use
  Company Number: US-PFIZER INC-2013184874

PATIENT
  Age: 79 Year
  Sex: Female

DRUGS (11)
  1. INLYTA [Suspect]
     Indication: RENAL CANCER
     Dosage: STRENGTH 5 MG, UNK
     Dates: start: 20130603
  2. AFINITOR [Concomitant]
     Dosage: UNK
  3. ARICEPT [Concomitant]
     Dosage: UNK
  4. FISH OIL [Concomitant]
     Dosage: UNK
  5. LASIX [Concomitant]
     Dosage: UNK
  6. LIPITOR [Concomitant]
     Dosage: UNK
  7. POTASSIUM CHLORIDE [Concomitant]
     Dosage: UNK
  8. CALCIUM CARBONATE/ERGOCALCIFEROL [Concomitant]
     Dosage: UNK
  9. CO-Q-10 [Concomitant]
     Dosage: UNK
  10. ESTER-C [Concomitant]
     Dosage: UNK
  11. BOSWELLIA SERRATA EXTRACT [Concomitant]
     Dosage: UNK

REACTIONS (1)
  - Dementia [Unknown]
